FAERS Safety Report 23010283 (Version 2)
Quarter: 2023Q4

REPORT INFORMATION
  Report Type: Report from Study
  Country: US (occurrence: US)
  Receive Date: 20230929
  Receipt Date: 20231009
  Transmission Date: 20240109
  Serious: No
  Sender: FDA-Public Use
  Company Number: US-SANOFI-01781862

PATIENT
  Age: 27 Year
  Sex: Female

DRUGS (1)
  1. THYROTROPIN ALFA [Suspect]
     Active Substance: THYROTROPIN ALFA
     Indication: Thyroid cancer
     Dosage: 0.9 MG, 1X
     Route: 065
     Dates: start: 20230925, end: 20230925

REACTIONS (1)
  - Maternal exposure during pregnancy [Unknown]

NARRATIVE: CASE EVENT DATE: 20230926
